FAERS Safety Report 20100468 (Version 1)
Quarter: 2021Q4

REPORT INFORMATION
  Report Type: Spontaneous
  Country: US (occurrence: US)
  Receive Date: 20211123
  Receipt Date: 20211123
  Transmission Date: 20220304
  Serious: Yes (Hospitalization, Other)
  Sender: FDA-Public Use
  Company Number: US-SUN PHARMACEUTICAL INDUSTRIES LTD-2021R1-318427

PATIENT
  Age: 25 Year
  Sex: Female

DRUGS (5)
  1. DICYCLOMINE [Suspect]
     Active Substance: DICYCLOMINE HYDROCHLORIDE
     Indication: Hyperemesis gravidarum
     Dosage: UNK
     Route: 065
  2. FAMOTIDINE [Suspect]
     Active Substance: FAMOTIDINE
     Indication: Hyperemesis gravidarum
     Dosage: UNK
     Route: 065
  3. METOCLOPRAMIDE [Suspect]
     Active Substance: METOCLOPRAMIDE
     Indication: Hyperemesis gravidarum
     Dosage: UNK
     Route: 065
  4. PROMETHAZINE [Suspect]
     Active Substance: PROMETHAZINE HYDROCHLORIDE
     Indication: Hyperemesis gravidarum
     Dosage: UNK
     Route: 065
  5. THIAMINE [Suspect]
     Active Substance: THIAMINE
     Indication: Hyperemesis gravidarum
     Dosage: UNK
     Route: 065

REACTIONS (5)
  - Exposure during pregnancy [Unknown]
  - Condition aggravated [Unknown]
  - Hypokalaemia [Unknown]
  - Metabolic alkalosis [Unknown]
  - Respiratory alkalosis [Not Recovered/Not Resolved]
